FAERS Safety Report 9454673 (Version 1)
Quarter: 2013Q3

REPORT INFORMATION
  Report Type: Spontaneous
  Country: GB (occurrence: GB)
  Receive Date: 20130812
  Receipt Date: 20130812
  Transmission Date: 20140515
  Serious: Yes (Life-Threatening, Hospitalization, Disabling)
  Sender: FDA-Public Use
  Company Number: PHHY2013GB085734

PATIENT
  Age: 66 Year
  Sex: Female
  Weight: 52 kg

DRUGS (6)
  1. STRONTIUM RANELATE [Suspect]
     Indication: OSTEOARTHRITIS
     Dosage: 2 G, QD, AT NIGHT
     Route: 048
     Dates: start: 20120901, end: 20130730
  2. GABAPENTIN [Suspect]
     Indication: FIBROMYALGIA
     Dosage: 100 MG, TID
     Route: 048
     Dates: start: 20120901
  3. TRAMADOL [Concomitant]
  4. AMITRIPTYLINE [Concomitant]
  5. OMEPRAZOLE [Concomitant]
  6. CALCICHEW D3 [Concomitant]

REACTIONS (2)
  - Purpura [Not Recovered/Not Resolved]
  - Vasculitic rash [Not Recovered/Not Resolved]
